FAERS Safety Report 4278061-2 (Version None)
Quarter: 2004Q1

REPORT INFORMATION
  Report Type: 
  Country: None (occurrence: None)
  Receive Date: 20040120
  Receipt Date: 20040108
  Transmission Date: 20041129
  Serious: Yes (Hospitalization)
  Sender: FDA-Public Use
  Company Number: 000743

PATIENT
  Age: 66 Year
  Sex: Male

DRUGS (1)
  1. ZEVALIN [Suspect]
     Indication: NON-HODGKIN'S LYMPHOMA
     Dosage: SEE IMAGE
     Route: 042
     Dates: start: 20031209, end: 20031209

REACTIONS (9)
  - BETA HAEMOLYTIC STREPTOCOCCAL INFECTION [None]
  - BODY TEMPERATURE INCREASED [None]
  - CELLULITIS [None]
  - CONDITION AGGRAVATED [None]
  - HAEMATOCRIT DECREASED [None]
  - HAEMOGLOBIN DECREASED [None]
  - PLATELET COUNT INCREASED [None]
  - STREPTOCOCCAL SEPSIS [None]
  - WHITE BLOOD CELL COUNT INCREASED [None]
